FAERS Safety Report 19988484 (Version 3)
Quarter: 2021Q4

REPORT INFORMATION
  Report Type: Report from Study
  Country: US (occurrence: US)
  Receive Date: 20211023
  Receipt Date: 20211224
  Transmission Date: 20220303
  Serious: Yes (Other)
  Sender: FDA-Public Use
  Company Number: US-TAKEDA-2021TUS022141

PATIENT
  Age: 11 Year
  Sex: Male
  Weight: 33 kg

DRUGS (12)
  1. IDURSULFASE [Suspect]
     Active Substance: IDURSULFASE
     Indication: Mucopolysaccharidosis II
     Dosage: 18 MILLIGRAM, 1/WEEK
     Route: 042
     Dates: start: 20210309
  2. IDURSULFASE [Suspect]
     Active Substance: IDURSULFASE
     Indication: Mucopolysaccharidosis I
     Dosage: 18 MILLIGRAM, 1/WEEK
     Route: 042
     Dates: start: 20210309
  3. HEPARIN [Concomitant]
     Active Substance: HEPARIN SODIUM
     Dosage: UNK
  4. DIPHENHYDRAMINE [Concomitant]
     Active Substance: DIPHENHYDRAMINE
     Dosage: UNK
  5. ALBUTEROL [Concomitant]
     Active Substance: ALBUTEROL
  6. SODIUM CHLORIDE [Concomitant]
     Active Substance: SODIUM CHLORIDE
  7. EPINEPHRINE [Concomitant]
     Active Substance: EPINEPHRINE
     Dosage: UNK
  8. ZYRTEC [Concomitant]
     Active Substance: CETIRIZINE HYDROCHLORIDE
  9. AMOXICILLIN [Concomitant]
     Active Substance: AMOXICILLIN
  10. RECON [Concomitant]
  11. SODIUM CHLORIDE [Concomitant]
     Active Substance: SODIUM CHLORIDE
     Dosage: UNK
  12. LMX4 [Concomitant]
     Active Substance: LIDOCAINE
     Dosage: UNK

REACTIONS (7)
  - Respiratory tract infection [Unknown]
  - Muscle twitching [Unknown]
  - Nasal pruritus [Unknown]
  - Ocular hyperaemia [Unknown]
  - Pyrexia [Unknown]
  - Ear, nose and throat infection [Unknown]
  - Eye infection [Unknown]

NARRATIVE: CASE EVENT DATE: 20210326
